FAERS Safety Report 13417175 (Version 1)
Quarter: 2017Q2

REPORT INFORMATION
  Report Type: Report from Study
  Country: US (occurrence: US)
  Receive Date: 20170407
  Receipt Date: 20170407
  Transmission Date: 20170830
  Serious: Yes (Other)
  Sender: FDA-Public Use
  Company Number: US-BIOGEN-2014BI034723

PATIENT
  Sex: Male

DRUGS (1)
  1. AVONEX [Suspect]
     Active Substance: INTERFERON BETA-1A
     Indication: MULTIPLE SCLEROSIS
     Route: 030
     Dates: start: 20131011, end: 2016

REACTIONS (29)
  - Hypoaesthesia [Not Recovered/Not Resolved]
  - Lower limb fracture [Recovered/Resolved]
  - Peripheral swelling [Unknown]
  - CSF oligoclonal band present [Unknown]
  - Neuropathy peripheral [Not Recovered/Not Resolved]
  - Burning sensation [Not Recovered/Not Resolved]
  - Depression [Unknown]
  - Pain [Not Recovered/Not Resolved]
  - Fall [Recovered/Resolved]
  - Memory impairment [Unknown]
  - Myelitis transverse [Not Recovered/Not Resolved]
  - Drug intolerance [Unknown]
  - Insomnia [Not Recovered/Not Resolved]
  - Feeling abnormal [Not Recovered/Not Resolved]
  - Intentional product use issue [Not Recovered/Not Resolved]
  - Visual impairment [Not Recovered/Not Resolved]
  - Muscle atrophy [Not Recovered/Not Resolved]
  - Fatigue [Not Recovered/Not Resolved]
  - Panic attack [Not Recovered/Not Resolved]
  - Asthenia [Unknown]
  - Atrophy [Not Recovered/Not Resolved]
  - Road traffic accident [Recovered/Resolved]
  - Hand fracture [Recovered/Resolved]
  - Concussion [Recovered/Resolved]
  - Hypoacusis [Not Recovered/Not Resolved]
  - Swelling [Unknown]
  - Drug ineffective [Recovered/Resolved with Sequelae]
  - Central nervous system lesion [Not Recovered/Not Resolved]
  - Gait disturbance [Not Recovered/Not Resolved]

NARRATIVE: CASE EVENT DATE: 2014
